FAERS Safety Report 9240016 (Version 1)
Quarter: 2013Q2

REPORT INFORMATION
  Report Type: Spontaneous
  Country: FR (occurrence: FR)
  Receive Date: 20130418
  Receipt Date: 20130418
  Transmission Date: 20140414
  Serious: Yes (Disabling)
  Sender: FDA-Public Use
  Company Number: PHHY2013FR035795

PATIENT
  Age: 53 Year
  Sex: Female

DRUGS (1)
  1. EXJADE [Suspect]
     Indication: HAEMOCHROMATOSIS
     Dosage: 875 MG, QD
     Route: 048
     Dates: start: 201201

REACTIONS (2)
  - Tendon rupture [Not Recovered/Not Resolved]
  - Tendon calcification [Not Recovered/Not Resolved]
